FAERS Safety Report 25673174 (Version 1)
Quarter: 2025Q3

REPORT INFORMATION
  Report Type: Report from Study
  Country: US (occurrence: US)
  Receive Date: 20250813
  Receipt Date: 20250813
  Transmission Date: 20251021
  Serious: Yes (Other)
  Sender: NOVARTIS
  Company Number: US-002147023-NVSC2025US126463

PATIENT
  Sex: Female

DRUGS (2)
  1. KESIMPTA [Suspect]
     Active Substance: OFATUMUMAB
     Indication: Multiple sclerosis
     Route: 058
  2. KESIMPTA [Suspect]
     Active Substance: OFATUMUMAB
     Route: 065
     Dates: start: 202506

REACTIONS (6)
  - Multiple sclerosis [Unknown]
  - Multiple sclerosis relapse [Unknown]
  - Blindness [Unknown]
  - Dysphagia [Unknown]
  - Paraesthesia [Unknown]
  - Unevaluable event [Unknown]
